FAERS Safety Report 8866071 (Version 1)
Quarter: 2012Q4

REPORT INFORMATION
  Report Type: Report from Study
  Country: ES (occurrence: ES)
  Receive Date: 20121025
  Receipt Date: 20121025
  Transmission Date: 20130627
  Serious: Yes (Death)
  Sender: FDA-Public Use
  Company Number: ES-PFIZER INC-2012262049

PATIENT
  Age: 5 Year
  Sex: Male

DRUGS (1)
  1. ONDANSETRON HCL [Suspect]

REACTIONS (4)
  - Hyperthermia malignant [Fatal]
  - Ventricular tachycardia [Fatal]
  - Serotonin syndrome [Fatal]
  - Muscle rigidity [Fatal]
